FAERS Safety Report 25517270 (Version 2)
Quarter: 2025Q3

REPORT INFORMATION
  Report Type: Spontaneous
  Country: US (occurrence: US)
  Receive Date: 20250704
  Receipt Date: 20250816
  Transmission Date: 20251021
  Serious: No
  Sender: ALEXION PHARMACEUTICALS
  Company Number: US-AstraZeneca-CH-00902177AP

PATIENT
  Sex: Male

DRUGS (2)
  1. BREZTRI [Suspect]
     Active Substance: BUDESONIDE\FORMOTEROL\GLYCOPYRROLATE
     Dosage: 160 MICROGRAM, BID
     Route: 065
     Dates: start: 2025
  2. PREDNISONE [Suspect]
     Active Substance: PREDNISONE
     Route: 065

REACTIONS (8)
  - Respiratory tract congestion [Unknown]
  - Device use issue [Unknown]
  - Device delivery system issue [Unknown]
  - Dysphonia [Unknown]
  - Arthropod bite [Unknown]
  - Eyelid disorder [Unknown]
  - Wrong technique in product usage process [Unknown]
  - Product prescribing issue [Unknown]
